FAERS Safety Report 26043173 (Version 1)
Quarter: 2025Q4

REPORT INFORMATION
  Report Type: Spontaneous
  Country: CN (occurrence: CN)
  Receive Date: 20251113
  Receipt Date: 20251113
  Transmission Date: 20260118
  Serious: Yes (Death)
  Sender: NOVARTIS
  Company Number: CN-002147023-NVSC2025CN174575

PATIENT

DRUGS (1)
  1. PAZOPANIB [Suspect]
     Active Substance: PAZOPANIB
     Indication: Rhabdomyosarcoma
     Dosage: UNK
     Route: 065

REACTIONS (3)
  - Rhabdomyosarcoma recurrent [Fatal]
  - Malignant neoplasm progression [Fatal]
  - Off label use [Unknown]
